FAERS Safety Report 14249098 (Version 5)
Quarter: 2019Q2

REPORT INFORMATION
  Report Type: Spontaneous
  Country: US (occurrence: US)
  Receive Date: 20171204
  Receipt Date: 20190518
  Transmission Date: 20190711
  Serious: No
  Sender: FDA-Public Use
  Company Number: US-LUNDBECK-DKLU2039785

PATIENT
  Age: 13 Year
  Sex: Female
  Weight: 30 kg

DRUGS (5)
  1. SABRIL [Suspect]
     Active Substance: VIGABATRIN
     Route: 048
     Dates: start: 20170110
  2. SABRIL [Suspect]
     Active Substance: VIGABATRIN
     Route: 048
     Dates: start: 20170110, end: 20190506
  3. SABRIL [Suspect]
     Active Substance: VIGABATRIN
     Indication: LENNOX-GASTAUT SYNDROME
     Route: 048
     Dates: start: 20170110
  4. SABRIL [Suspect]
     Active Substance: VIGABATRIN
     Route: 048
     Dates: start: 20170110
  5. SABRIL [Suspect]
     Active Substance: VIGABATRIN
     Route: 048
     Dates: start: 20170110, end: 20190506

REACTIONS (1)
  - Drug ineffective [Unknown]

NARRATIVE: CASE EVENT DATE: 20190506
